FAERS Safety Report 18574570 (Version 1)
Quarter: 2020Q4

REPORT INFORMATION
  Report Type: Spontaneous
  Country: US (occurrence: US)
  Receive Date: 20201202
  Receipt Date: 20201202
  Transmission Date: 20210114
  Serious: Yes (Hospitalization)
  Sender: FDA-Public Use
  Company Number: None

PATIENT
  Age: 65 Year
  Sex: Male
  Weight: 84.37 kg

DRUGS (1)
  1. NIVOLUMAB (NIVOLUMAB 10MG/ML INJ, SOLN) [Suspect]
     Active Substance: NIVOLUMAB
     Indication: RENAL CELL CARCINOMA
     Dosage: ?          OTHER ROUTE:IV?
     Dates: start: 20200709, end: 20200709

REACTIONS (9)
  - Angioedema [None]
  - Infusion related reaction [None]
  - Dialysis [None]
  - Renal tubular necrosis [None]
  - Blood creatinine increased [None]
  - Blood urea increased [None]
  - Eyelid oedema [None]
  - Acute kidney injury [None]
  - Tubulointerstitial nephritis [None]

NARRATIVE: CASE EVENT DATE: 20200805
